FAERS Safety Report 4866925-8 (Version None)
Quarter: 2005Q4

REPORT INFORMATION
  Report Type: 
  Country: None (occurrence: None)
  Receive Date: 20051222
  Receipt Date: 20051215
  Transmission Date: 20060501
  Serious: Yes (Other)
  Sender: FDA-Public Use
  Company Number: 2005159553

PATIENT
  Sex: Female

DRUGS (3)
  1. ELETRIPTAN (ELETRIPTAN) [Suspect]
     Indication: MIGRAINE
     Dosage: (40 MG, ^SOS^), ORAL
     Route: 048
  2. PRAMIN (METOCLOPRAMIDE) [Concomitant]
  3. MICROPIRIN (ACETYLSALICYLIC ACID) [Concomitant]

REACTIONS (4)
  - CONDITION AGGRAVATED [None]
  - DEPENDENCE [None]
  - INAPPROPRIATE SCHEDULE OF DRUG ADMINISTRATION [None]
  - MIGRAINE [None]
